FAERS Safety Report 8348922-3 (Version None)
Quarter: 2012Q2

REPORT INFORMATION
  Report Type: 
  Country: None (occurrence: None)
  Receive Date: 20120508
  Receipt Date: 20120424
  Transmission Date: 20120825
  Serious: Yes (Other)
  Sender: FDA-Public Use
  Company Number: DSA_56329_2012

PATIENT

DRUGS (7)
  1. DILTIAZEM [Suspect]
     Indication: CHRONIC OBSTRUCTIVE PULMONARY DISEASE
     Dosage: (90 MG, )
     Dates: start: 20120430
  2. DIGOXIN [Concomitant]
  3. PHYLLOCONTIN (UNKNOWN) [Concomitant]
  4. VENTOLIN /00139501/ (UNKNOWN) [Concomitant]
  5. ANTIHYPERTENSIVES (UNKNOWN) [Concomitant]
  6. SIMBICORT TURBUHALER (UNKNOWN) [Concomitant]
  7. LISINOPRIL [Concomitant]

REACTIONS (2)
  - SUDDEN ONSET OF SLEEP [None]
  - TACHYCARDIA [None]
